FAERS Safety Report 7888601-X (Version None)
Quarter: 2011Q4

REPORT INFORMATION
  Report Type: 
  Country: None (occurrence: None)
  Receive Date: 20111103
  Receipt Date: 20111031
  Transmission Date: 20120403
  Serious: No
  Sender: FDA-Public Use
  Company Number: US-PFIZER INC-2011266993

PATIENT
  Sex: Female
  Weight: 56.236 kg

DRUGS (4)
  1. LYRICA [Suspect]
     Dosage: 150 MG, 3X/DAY
     Dates: start: 20060901
  2. CALCIUM [Concomitant]
     Indication: OSTEOPOROSIS
     Dosage: UNK
  3. LYRICA [Suspect]
     Indication: NEURALGIA
     Dosage: 50 MG, UNK
  4. CYMBALTA [Concomitant]
     Indication: PAIN
     Dosage: UNK

REACTIONS (4)
  - SENSATION OF HEAVINESS [None]
  - FATIGUE [None]
  - OEDEMA PERIPHERAL [None]
  - DRUG EFFECT DECREASED [None]
